FAERS Safety Report 11257226 (Version 1)
Quarter: 2015Q3

REPORT INFORMATION
  Report Type: Spontaneous
  Country: US (occurrence: US)
  Receive Date: 20150709
  Receipt Date: 20150709
  Transmission Date: 20151125
  Serious: No
  Sender: FDA-Public Use
  Company Number: US-PURDUE-USA-2014-0115667

PATIENT
  Sex: Female

DRUGS (2)
  1. BUTRANS [Suspect]
     Active Substance: BUPRENORPHINE
     Indication: PAIN
  2. BUTRANS [Suspect]
     Active Substance: BUPRENORPHINE
     Indication: FIBROMYALGIA
     Dosage: 20 MCG, WEEKLY
     Route: 062
     Dates: start: 201406

REACTIONS (5)
  - Product adhesion issue [Unknown]
  - Application site erythema [Unknown]
  - Application site pruritus [Unknown]
  - Fatigue [Unknown]
  - Drug ineffective [Unknown]
